FAERS Safety Report 25661594 (Version 1)
Quarter: 2025Q3

REPORT INFORMATION
  Report Type: Report from Study
  Country: CN (occurrence: CN)
  Receive Date: 20250808
  Receipt Date: 20250808
  Transmission Date: 20251021
  Serious: Yes (Death, Other)
  Sender: SANOFI AVENTIS
  Company Number: CN-DialogSolutions-SAAVPROD-PI807333-C4

PATIENT

DRUGS (3)
  1. ANTI-THYMOCYTE GLOBULIN (RABBIT) NOS [Suspect]
     Active Substance: LAPINE T-LYMPHOCYTE IMMUNE GLOBULIN
     Indication: Transplant rejection
     Dosage: 2.5 MG/KG, QD FROM DAYS ?5 TO -2
  2. BUSULFAN [Suspect]
     Active Substance: BUSULFAN
     Indication: Transplant rejection
     Dosage: 3.2 MG/KG, QD ON DAYS ?7 AND ?6
  3. CYCLOPHOSPHAMIDE [Suspect]
     Active Substance: CYCLOPHOSPHAMIDE
     Indication: Transplant rejection
     Dosage: 50 MG/KG, QD FROM DAYS ?5 TO ?2

REACTIONS (1)
  - Cardiotoxicity [Fatal]
